FAERS Safety Report 7446528-1 (Version None)
Quarter: 2011Q2

REPORT INFORMATION
  Report Type: 
  Country: None (occurrence: None)
  Receive Date: 20110429
  Receipt Date: 20100716
  Transmission Date: 20111010
  Serious: No
  Sender: FDA-Public Use
  Company Number: US-ASTRAZENECA-2010SE33311

PATIENT
  Age: 68 Year
  Sex: Female
  Weight: 74.8 kg

DRUGS (7)
  1. VITAMINS [Concomitant]
  2. COZAAR [Concomitant]
  3. INSULIN [Concomitant]
  4. NEXIUM [Suspect]
     Indication: GASTRITIS
     Route: 048
     Dates: start: 20070101, end: 20100101
  5. LIPITOR [Concomitant]
  6. LEVOTHYROXINE SODIUM [Concomitant]
  7. CALTRATE [Concomitant]

REACTIONS (2)
  - DYSPEPSIA [None]
  - DRUG DOSE OMISSION [None]
